FAERS Safety Report 6239569-3 (Version None)
Quarter: 2009Q2

REPORT INFORMATION
  Report Type: 
  Country: None (occurrence: None)
  Receive Date: 20090619
  Receipt Date: 20090608
  Transmission Date: 20091009
  Serious: Yes (Hospitalization)
  Sender: FDA-Public Use
  Company Number: ADR3792009

PATIENT
  Age: 27 Year
  Sex: Female

DRUGS (4)
  1. CITALOPRAM HYDROBROMIDE [Suspect]
     Indication: PHOBIA OF EXAMS
     Dosage: 10 MG, ORAL
     Route: 048
     Dates: start: 20090207, end: 20090210
  2. CICLESONID [Concomitant]
  3. FORMOTEROL FUMARATE [Concomitant]
  4. ALBUTEROL [Concomitant]

REACTIONS (1)
  - DRUG INTOLERANCE [None]
